FAERS Safety Report 10494228 (Version 2)
Quarter: 2014Q4

REPORT INFORMATION
  Report Type: Spontaneous
  Country: US (occurrence: US)
  Receive Date: 20141003
  Receipt Date: 20141022
  Transmission Date: 20150528
  Serious: Yes (Death, Other)
  Sender: FDA-Public Use
  Company Number: US-GLAXOSMITHKLINE-A1083550A

PATIENT
  Age: 69 Year
  Sex: Female
  Weight: 85 kg

DRUGS (2)
  1. VOTRIENT [Suspect]
     Active Substance: PAZOPANIB HYDROCHLORIDE
     Indication: HEPATIC CANCER
     Dosage: 800 MG DAILY
     Route: 048
     Dates: start: 20140625, end: 201408
  2. MECLIZINE [Concomitant]
     Active Substance: MECLIZINE\MECLIZINE HYDROCHLORIDE

REACTIONS (11)
  - Urinary tract infection [Recovering/Resolving]
  - Nausea [Recovering/Resolving]
  - Decreased appetite [Recovering/Resolving]
  - Fall [Unknown]
  - Vertigo [Recovering/Resolving]
  - Musculoskeletal discomfort [Recovering/Resolving]
  - Blood urine present [Recovering/Resolving]
  - Fatigue [Recovering/Resolving]
  - Walking aid user [Unknown]
  - Drug ineffective [Unknown]
  - Hepatic cancer [Fatal]

NARRATIVE: CASE EVENT DATE: 20140721
